FAERS Safety Report 5800372-7 (Version None)
Quarter: 2008Q3

REPORT INFORMATION
  Report Type: 
  Country: None (occurrence: None)
  Receive Date: 20080703
  Receipt Date: 20080623
  Transmission Date: 20090109
  Serious: Yes (Other)
  Sender: FDA-Public Use
  Company Number: US-MERCK-0805USA03806

PATIENT
  Age: 58 Year
  Sex: Female

DRUGS (6)
  1. SINGULAIR [Suspect]
     Indication: ASTHMA
     Route: 048
     Dates: start: 20060727, end: 20080515
  2. SINGULAIR [Suspect]
     Indication: HYPERSENSITIVITY
     Route: 048
     Dates: start: 20060727, end: 20080515
  3. ADVAIR DISKUS 100/50 [Concomitant]
     Route: 065
  4. ALBUTEROL [Concomitant]
     Route: 065
  5. LEXAPRO [Concomitant]
     Route: 065
  6. FLUTICASONE PROPIONATE [Concomitant]
     Route: 065

REACTIONS (3)
  - ANXIETY [None]
  - PANIC ATTACK [None]
  - SUICIDAL IDEATION [None]
